FAERS Safety Report 23231920 (Version 1)
Quarter: 2023Q4

REPORT INFORMATION
  Report Type: Spontaneous
  Country: US (occurrence: None)
  Receive Date: 20231126
  Receipt Date: 20231126
  Transmission Date: 20240109
  Serious: Yes (Disabling)
  Sender: FDA-Public Use
  Company Number: None

PATIENT
  Age: 65 Year
  Sex: Female
  Weight: 72 kg

DRUGS (26)
  1. REPATHA [Suspect]
     Active Substance: EVOLOCUMAB
     Indication: Blood cholesterol increased
     Dosage: OTHER QUANTITY : 1 INJECTION(S);?OTHER FREQUENCY : EVERY 2 WEEKS;?
     Dates: start: 20230418, end: 20230502
  2. Clonidine HCL ER [Concomitant]
  3. Clonidine IR [Concomitant]
  4. Estriol/testosterone [Concomitant]
  5. compounded Vaginal cream [Concomitant]
  6. LASIX [Concomitant]
     Active Substance: FUROSEMIDE
  7. Protopic cream [Concomitant]
  8. NITROGLYCERIN [Concomitant]
     Active Substance: NITROGLYCERIN
  9. Diclofenic topica [Concomitant]
  10. AMOXICILLIN [Concomitant]
     Active Substance: AMOXICILLIN
  11. ZYRTEC [Concomitant]
     Active Substance: CETIRIZINE HYDROCHLORIDE
  12. MELATONIN [Concomitant]
     Active Substance: MELATONIN
  13. ASPIRIN [Concomitant]
     Active Substance: ASPIRIN
  14. COLACE [Concomitant]
     Active Substance: DOCUSATE SODIUM
  15. MINERALS\VITAMINS [Concomitant]
     Active Substance: MINERALS\VITAMINS
  16. B100 vit complex [Concomitant]
  17. ALPHA LIPOIC ACID [Concomitant]
     Active Substance: .ALPHA.-LIPOIC ACID
  18. VITAMIN D3 [Concomitant]
     Active Substance: CHOLECALCIFEROL
  19. Glucosamine/CHONROITN [Concomitant]
  20. DIMETHYL SULFONE [Concomitant]
     Active Substance: DIMETHYL SULFONE
  21. COENZYME Q10 [Concomitant]
     Active Substance: DIETARY SUPPLEMENT\UBIDECARENONE
  22. MAGNESIUM [Concomitant]
     Active Substance: MAGNESIUM
  23. DIAMINE OXIDASE [Concomitant]
  24. FAMOTIDINE [Concomitant]
     Active Substance: FAMOTIDINE
  25. MECLIZINE [Concomitant]
     Active Substance: MECLIZINE HYDROCHLORIDE
  26. DIETARY SUPPLEMENT\HERBALS\INDIAN FRANKINCENSE [Concomitant]
     Active Substance: DIETARY SUPPLEMENT\HERBALS\INDIAN FRANKINCENSE

REACTIONS (3)
  - Fibromyalgia [None]
  - Gait inability [None]
  - Muscular weakness [None]

NARRATIVE: CASE EVENT DATE: 20230503
